FAERS Safety Report 5451573-1 (Version None)
Quarter: 2007Q3

REPORT INFORMATION
  Report Type: 
  Country: None (occurrence: None)
  Receive Date: 20070913
  Receipt Date: 20070910
  Transmission Date: 20080115
  Serious: Yes (Disabling)
  Sender: FDA-Public Use
  Company Number: DE-SHR-DE-2007-015980

PATIENT
  Age: 72 Year
  Sex: Male
  Weight: 74 kg

DRUGS (6)
  1. MAGNEVIST [Suspect]
     Dosage: 41 ML, 1 DOSE
     Route: 042
     Dates: start: 20060608, end: 20060608
  2. MAGNEVIST [Suspect]
     Dosage: 19 ML, 1 DOSE
     Route: 042
     Dates: start: 20051116, end: 20051116
  3. OMNISCAN [Suspect]
     Dosage: 32 ML, 1 DOSE
     Route: 042
     Dates: start: 20050420, end: 20050420
  4. OMNISCAN [Suspect]
     Dosage: 30 ML, 1 DOSE
     Route: 042
     Dates: start: 20051110, end: 20051110
  5. OMNISCAN [Suspect]
     Dosage: 45 ML, 1 DOSE
     Route: 042
     Dates: start: 20060809, end: 20060809
  6. IMMUNOSUPPRESSIVE AGENTS [Concomitant]

REACTIONS (1)
  - NEPHROGENIC SYSTEMIC FIBROSIS [None]
